FAERS Safety Report 11310274 (Version 3)
Quarter: 2015Q3

REPORT INFORMATION
  Report Type: Spontaneous
  Country: US (occurrence: US)
  Receive Date: 20150724
  Receipt Date: 20150907
  Transmission Date: 20151125
  Serious: No
  Sender: FDA-Public Use
  Company Number: US-PFIZER INC-2015240346

PATIENT
  Age: 77 Year
  Sex: Male
  Weight: 69 kg

DRUGS (23)
  1. TENORMIN [Concomitant]
     Active Substance: ATENOLOL
     Dosage: 150 MG, DAILY
     Dates: start: 20141022
  2. AMLODIPINE BESYLATE. [Concomitant]
     Active Substance: AMLODIPINE BESYLATE
     Dosage: 10 MG, UNK
  3. PREVACID [Concomitant]
     Active Substance: LANSOPRAZOLE
     Dosage: 15 MG, DAILY
     Dates: start: 20140620
  4. MIRAPEX [Concomitant]
     Active Substance: PRAMIPEXOLE DIHYDROCHLORIDE
     Dosage: UNK
  5. FENTANYL. [Concomitant]
     Active Substance: FENTANYL
     Dosage: 75 MCG/HOUR EVERY 72 HOURS
     Dates: start: 20141106
  6. ZOFRAN [Concomitant]
     Active Substance: ONDANSETRON HYDROCHLORIDE
     Dosage: 4 MG, AS NEEDED (1 Q 6 HR PRN)
     Dates: start: 20140527
  7. STOOL SOFTENER [Concomitant]
     Active Substance: DOCUSATE CALCIUM
     Dosage: UNK
  8. DILAUDID [Concomitant]
     Active Substance: HYDROMORPHONE HYDROCHLORIDE
     Indication: PAIN
     Dosage: 4 MG, AS NEEDED (Q 4-6 HOURS PRN)
     Route: 048
     Dates: start: 20150615
  9. TRIAMCINOLONE ACETONIDE. [Concomitant]
     Active Substance: TRIAMCINOLONE ACETONIDE
     Dosage: 0.1 %, 2X/DAY
     Dates: start: 20140731
  10. POTASSIUM CHLORIDE. [Concomitant]
     Active Substance: POTASSIUM CHLORIDE
     Dosage: 20 MEQ, DAILY (2 TABS DAILY)
     Route: 048
  11. LASIX [Concomitant]
     Active Substance: FUROSEMIDE
     Dosage: 40 MG, DAILY
     Route: 048
  12. FLUOCINONIDE. [Concomitant]
     Active Substance: FLUOCINONIDE
     Dosage: 0.05 %, UNK
     Dates: start: 20141022
  13. COL RITE STOOL SOFTENER [Concomitant]
     Dosage: 25 MG, UNK
     Dates: start: 20141022
  14. ALPRAZOLAM. [Concomitant]
     Active Substance: ALPRAZOLAM
     Dosage: UNK, AS NEEDED
     Dates: start: 20141126
  15. SUTENT [Suspect]
     Active Substance: SUNITINIB MALATE
     Dosage: 50 MG, CYCLIC (DAILY X 4 WEEKS)
     Route: 048
     Dates: start: 20150618
  16. ZYRTEC [Concomitant]
     Active Substance: CETIRIZINE HYDROCHLORIDE
     Dosage: 10 MG, UNK
     Dates: start: 20141022
  17. CALCIUM [Concomitant]
     Active Substance: CALCIUM
     Dosage: UNK
  18. ATARAX [Concomitant]
     Active Substance: HYDROXYZINE\HYDROXYZINE HYDROCHLORIDE
     Indication: PRURITUS
     Dosage: AS NEEDED (1-2 TABS Q 6 HOURS PRN)
     Route: 048
     Dates: start: 20140701
  19. CETIRIZINE HCL [Concomitant]
     Active Substance: CETIRIZINE HYDROCHLORIDE
     Dosage: 10 MG, 1X/DAY (I TAB PO IN AM)
     Route: 048
     Dates: start: 20140731
  20. MIRALAX [Concomitant]
     Active Substance: POLYETHYLENE GLYCOL 3350
     Dosage: UNK
     Dates: start: 20141022
  21. SUTENT [Suspect]
     Active Substance: SUNITINIB MALATE
     Indication: PANCREATIC NEUROENDOCRINE TUMOUR METASTATIC
     Dosage: 50 MG, CYCLIC (28 DAYS ON/14 DAYS OFF)
     Route: 048
     Dates: start: 20150702
  22. IBUPROFEN. [Concomitant]
     Active Substance: IBUPROFEN
     Dosage: UNK
  23. ATARAX [Concomitant]
     Active Substance: HYDROXYZINE\HYDROXYZINE HYDROCHLORIDE
     Dosage: 25 MG, 1X/DAY (PM DAILY)
     Dates: start: 20140731

REACTIONS (8)
  - Nausea [Unknown]
  - Fatigue [Recovering/Resolving]
  - Diarrhoea [Recovering/Resolving]
  - Pain [Unknown]
  - Weight decreased [Unknown]
  - Asthenia [Unknown]
  - Decreased appetite [Recovering/Resolving]
  - Dysgeusia [Unknown]

NARRATIVE: CASE EVENT DATE: 201507
